FAERS Safety Report 9505835 (Version 1)
Quarter: 2013Q1

REPORT INFORMATION
  Report Type: Spontaneous
  Country: US (occurrence: None)
  Receive Date: 20130226
  Receipt Date: 20130226
  Transmission Date: 20140127
  Serious: No
  Sender: FDA-Public Use
  Company Number: PHEH2012US007045

PATIENT
  Sex: Female

DRUGS (1)
  1. TOBI [Suspect]
     Dosage: BID, INHALATION

REACTIONS (1)
  - Dyspnoea [None]
